FAERS Safety Report 17478934 (Version 1)
Quarter: 2020Q1

REPORT INFORMATION
  Report Type: Spontaneous
  Country: AT (occurrence: AT)
  Receive Date: 20200228
  Receipt Date: 20200228
  Transmission Date: 20200409
  Serious: Yes (Death, Other)
  Sender: FDA-Public Use
  Company Number: AT-MYLANLABS-2020M1022265

PATIENT
  Age: 4 Year
  Sex: Male

DRUGS (4)
  1. ETOPOSIDE. [Suspect]
     Active Substance: ETOPOSIDE
     Indication: EPENDYMOMA MALIGNANT
     Dosage: MODIFIED HIT-SKK (MSKK; CYCLOPHOSPHAMIDE/VINCRISTINE, CARBOPLATIN/ETOPOSIDE)
     Route: 065
  2. CYCLOPHOSPHAMIDE. [Suspect]
     Active Substance: CYCLOPHOSPHAMIDE
     Indication: EPENDYMOMA MALIGNANT
     Dosage: MODIFIED HIT-SKK (MSKK; CYCLOPHOSPHAMIDE/VINCRISTINE, CARBOPLATIN/ETOPOSIDE)
     Route: 065
  3. CARBOPLATIN. [Suspect]
     Active Substance: CARBOPLATIN
     Indication: EPENDYMOMA MALIGNANT
     Dosage: MODIFIED HIT-SKK (MSKK; CYCLOPHOSPHAMIDE/VINCRISTINE, CARBOPLATIN/ETOPOSIDE)
     Route: 065
  4. VINCRISTINE [Suspect]
     Active Substance: VINCRISTINE
     Indication: EPENDYMOMA MALIGNANT
     Dosage: MODIFIED HIT-SKK (MSKK; CYCLOPHOSPHAMIDE/VINCRISTINE, CARBOPLATIN/ETOPOSIDE)
     Route: 065

REACTIONS (2)
  - Malignant neoplasm progression [Fatal]
  - Product use in unapproved indication [Unknown]
